FAERS Safety Report 6856872-4 (Version None)
Quarter: 2010Q3

REPORT INFORMATION
  Report Type: 
  Country: None (occurrence: None)
  Receive Date: 20100719
  Receipt Date: 20100713
  Transmission Date: 20110219
  Serious: Yes (Death)
  Sender: FDA-Public Use
  Company Number: JP-BRISTOL-MYERS SQUIBB COMPANY-15196579

PATIENT
  Age: 71 Year
  Sex: Female

DRUGS (1)
  1. TAXOL [Suspect]
     Indication: BREAST CANCER
     Dosage: 1DF=70-80MG/M2 NO OF CYCLES:2-3
     Route: 041

REACTIONS (1)
  - INTERSTITIAL LUNG DISEASE [None]
